FAERS Safety Report 5489143-1 (Version None)
Quarter: 2007Q4

REPORT INFORMATION
  Report Type: 
  Country: None (occurrence: None)
  Receive Date: 20071005
  Receipt Date: 20070702
  Transmission Date: 20080405
  Serious: Yes (Other)
  Sender: FDA-Public Use
  Company Number: PHEH2007US09522

PATIENT
  Sex: Male

DRUGS (1)
  1. TEKTURNA [Suspect]
     Indication: HYPERTENSION
     Dosage: 150 MGK, QD, ORAL
     Route: 048

REACTIONS (3)
  - FOOD ALLERGY [None]
  - OEDEMA MOUTH [None]
  - PARAESTHESIA ORAL [None]
